FAERS Safety Report 11263637 (Version 1)
Quarter: 2015Q3

REPORT INFORMATION
  Report Type: Spontaneous
  Country: CA (occurrence: None)
  Receive Date: 20150710
  Receipt Date: 20150710
  Transmission Date: 20151125
  Serious: Yes (Death, Hospitalization)
  Sender: FDA-Public Use
  Company Number: None

PATIENT
  Age: 78 Year
  Sex: Male
  Weight: 75.7 kg

DRUGS (2)
  1. LEUPROLIDE ACETATE. [Suspect]
     Active Substance: LEUPROLIDE ACETATE
     Dates: end: 20150326
  2. CASODEX [Suspect]
     Active Substance: BICALUTAMIDE
     Dates: end: 20150430

REACTIONS (2)
  - Myocardial infarction [None]
  - Sudden death [None]

NARRATIVE: CASE EVENT DATE: 20150430
